FAERS Safety Report 9376779 (Version 1)
Quarter: 2013Q3

REPORT INFORMATION
  Report Type: Spontaneous
  Country: DE (occurrence: DE)
  Receive Date: 20130701
  Receipt Date: 20130701
  Transmission Date: 20140515
  Serious: Yes (Hospitalization, Other)
  Sender: FDA-Public Use
  Company Number: DE-UCBSA-089364

PATIENT
  Age: 50 Year
  Sex: Female
  Weight: 50 kg

DRUGS (5)
  1. KEPPRA [Suspect]
     Indication: EPILEPSY
     Dosage: 750 MG STRENGTH
     Route: 048
     Dates: start: 201204, end: 2013
  2. KEPPRA [Suspect]
     Indication: EPILEPSY
     Dosage: 70 TABLETS
     Dates: start: 20130603, end: 20130603
  3. PANTOZOL [Concomitant]
     Indication: PROPHYLAXIS AGAINST GASTROINTESTINAL ULCER
     Route: 048
  4. CORTISONE [Concomitant]
  5. DEXAMETHASONE [Concomitant]
     Indication: BRAIN OEDEMA

REACTIONS (5)
  - Suicide attempt [Recovered/Resolved]
  - Status epilepticus [Recovered/Resolved]
  - Depressed mood [Unknown]
  - Grand mal convulsion [Recovered/Resolved]
  - Overdose [Unknown]
